FAERS Safety Report 4550928-7 (Version None)
Quarter: 2004Q4

REPORT INFORMATION
  Report Type: 
  Country: None (occurrence: None)
  Receive Date: 20041217
  Receipt Date: 20040903
  Transmission Date: 20050328
  Serious: No
  Sender: FDA-Public Use
  Company Number: 2004-BP-07775BP

PATIENT
  Age: 57 Year
  Sex: Female

DRUGS (14)
  1. SPIRIVA [Suspect]
     Indication: CHRONIC OBSTRUCTIVE AIRWAYS DISEASE
     Dosage: 18 MCG (18 MCG), IH
     Route: 055
  2. SPIRIVA [Suspect]
     Indication: EMPHYSEMA
     Dosage: 18 MCG (18 MCG), IH
     Route: 055
  3. SPIRIVA [Suspect]
  4. ALLCEPT [Concomitant]
  5. FUROSEMIDE (FUROSEMIDE) [Concomitant]
  6. LISINOPRIL [Concomitant]
  7. EFFEXOR [Concomitant]
  8. POTASSIUM (POTASSIUM) [Concomitant]
  9. PLAVIX [Concomitant]
  10. ATARAX [Concomitant]
  11. PHENOBARBITAL TAB [Concomitant]
  12. SINGULAIR (MONTELUKAST) [Concomitant]
  13. LOVENOX [Concomitant]
  14. ADVAIR DISKUS 100/50 [Concomitant]

REACTIONS (3)
  - COUGH [None]
  - INSOMNIA [None]
  - THROAT IRRITATION [None]
